FAERS Safety Report 8097784-0 (Version None)
Quarter: 2012Q1

REPORT INFORMATION
  Report Type: 
  Country: None (occurrence: None)
  Receive Date: 20120128
  Receipt Date: 20110712
  Transmission Date: 20120608
  Serious: No
  Sender: FDA-Public Use
  Company Number: US-ABBOTT-11P-163-0840007-00

PATIENT
  Sex: Male

DRUGS (3)
  1. HUMIRA [Suspect]
     Indication: PSORIATIC ARTHROPATHY
     Dates: start: 20090301, end: 20090501
  2. HUMIRA [Suspect]
     Dates: start: 20090501, end: 20110701
  3. HUMIRA [Suspect]
     Dates: start: 20110701

REACTIONS (5)
  - FOOT DEFORMITY [None]
  - LOCALISED INFECTION [None]
  - PAIN IN EXTREMITY [None]
  - ERYTHEMA [None]
  - OEDEMA PERIPHERAL [None]
